FAERS Safety Report 11230434 (Version 1)
Quarter: 2015Q3

REPORT INFORMATION
  Report Type: Spontaneous
  Country: US (occurrence: US)
  Receive Date: 20150701
  Receipt Date: 20150701
  Transmission Date: 20151125
  Serious: Yes (Other)
  Sender: FDA-Public Use
  Company Number: US-AUROBINDO-AUR-APU-2015-05359

PATIENT
  Sex: Female

DRUGS (1)
  1. LEVOFLOXACIN 250MG [Suspect]
     Active Substance: LEVOFLOXACIN
     Indication: OSTEOMYELITIS
     Dosage: 250 MG, ONCE A DAY
     Route: 065
     Dates: start: 20150622, end: 20150622

REACTIONS (3)
  - Asthenia [Recovered/Resolved]
  - Gait disturbance [Recovered/Resolved]
  - Paralysis [Recovered/Resolved]

NARRATIVE: CASE EVENT DATE: 20150622
